FAERS Safety Report 25241320 (Version 1)
Quarter: 2025Q2

REPORT INFORMATION
  Report Type: Report from Study
  Country: GB (occurrence: GB)
  Receive Date: 20250425
  Receipt Date: 20250425
  Transmission Date: 20250717
  Serious: Yes (Other)
  Sender: TEVA
  Company Number: GB-TEVA-VS-3323739

PATIENT
  Age: 60 Year
  Sex: Female

DRUGS (2)
  1. AJOVY [Suspect]
     Active Substance: FREMANEZUMAB-VFRM
     Indication: Migraine
     Route: 058
     Dates: start: 20250405
  2. AJOVY [Suspect]
     Active Substance: FREMANEZUMAB-VFRM
     Route: 058

REACTIONS (4)
  - Mast cell activation syndrome [Recovered/Resolved]
  - Off label use [Unknown]
  - Histamine level increased [Recovered/Resolved]
  - Anxiety [Recovered/Resolved]
